FAERS Safety Report 26157570 (Version 1)
Quarter: 2025Q4

REPORT INFORMATION
  Report Type: Spontaneous
  Country: EU (occurrence: EU)
  Receive Date: 20251215
  Receipt Date: 20251215
  Transmission Date: 20260118
  Serious: Yes (Hospitalization)
  Sender: MYLAN
  Company Number: None

PATIENT
  Age: 69 Year
  Sex: Male
  Weight: 60 kg

DRUGS (4)
  1. ACETAMINOPHEN [Suspect]
     Active Substance: ACETAMINOPHEN
     Indication: Pain
     Dosage: 8 GRAM, TOTAL (8 G IN TOTAL OVER THE NIGHT)1 GRAM, 1 HOUR
     Route: 061
     Dates: start: 20250925, end: 20250926
  2. ACETAMINOPHEN [Suspect]
     Active Substance: ACETAMINOPHEN
     Dosage: 8 GRAM, TOTAL (8 G IN TOTAL OVER THE NIGHT)1 GRAM, 1 HOUR
     Route: 048
     Dates: start: 20250925, end: 20250926
  3. ACETAMINOPHEN [Suspect]
     Active Substance: ACETAMINOPHEN
     Dosage: 8 GRAM, TOTAL (8 G IN TOTAL OVER THE NIGHT)1 GRAM, 1 HOUR
     Route: 048
     Dates: start: 20250925, end: 20250926
  4. ACETAMINOPHEN [Suspect]
     Active Substance: ACETAMINOPHEN
     Dosage: 8 GRAM, TOTAL (8 G IN TOTAL OVER THE NIGHT)1 GRAM, 1 HOUR
     Route: 061
     Dates: start: 20250925, end: 20250926

REACTIONS (2)
  - Hypertransaminasaemia [Recovered/Resolved]
  - Off label use [Recovered/Resolved]

NARRATIVE: CASE EVENT DATE: 20250925
